FAERS Safety Report 8352298-5 (Version None)
Quarter: 2012Q2

REPORT INFORMATION
  Report Type: 
  Country: None (occurrence: None)
  Receive Date: 20120511
  Receipt Date: 20120503
  Transmission Date: 20120825
  Serious: Yes (Other)
  Sender: FDA-Public Use
  Company Number: US-BAYER-2011-088260

PATIENT
  Sex: Female
  Weight: 60.771 kg

DRUGS (9)
  1. CELEBREX [Concomitant]
     Dosage: 200 MG, UNK
     Dates: start: 20090727
  2. AMBIEN CR [Concomitant]
     Dosage: 12.5 MG, UNK
     Dates: start: 20090727
  3. GABAPENTIN [Concomitant]
     Dosage: 300 MG, UNK
     Dates: start: 20090820
  4. YAZ [Suspect]
  5. YASMIN [Suspect]
  6. YAZ [Suspect]
     Indication: CONTRACEPTION
     Dosage: UNK
     Dates: start: 20090323, end: 20091013
  7. YAZ [Suspect]
  8. YASMIN [Suspect]
     Indication: CONTRACEPTION
     Dosage: UNK
     Dates: start: 20040916, end: 20090301
  9. YASMIN [Suspect]

REACTIONS (6)
  - INJURY [None]
  - EMOTIONAL DISTRESS [None]
  - PAIN [None]
  - MENTAL DISORDER [None]
  - DEEP VEIN THROMBOSIS [None]
  - ANHEDONIA [None]
